FAERS Safety Report 10258604 (Version 2)
Quarter: 2014Q2

REPORT INFORMATION
  Report Type: Spontaneous
  Country: US (occurrence: US)
  Receive Date: 20140625
  Receipt Date: 20140625
  Transmission Date: 20141212
  Serious: Yes (Other)
  Sender: FDA-Public Use
  Company Number: ALCN1998US000632

PATIENT
  Age: 37 Year
  Sex: Male
  Weight: 72.59 kg

DRUGS (3)
  1. TOBRADEX [Suspect]
     Indication: CONJUNCTIVITIS VIRAL
     Dosage: 1 GTT, Q4H
     Route: 047
     Dates: start: 19941026, end: 19950505
  2. TOBRADEX [Suspect]
     Indication: CONJUNCTIVITIS ALLERGIC
     Dosage: 1 GTT, QD
     Route: 047
     Dates: start: 19950505
  3. FML [Concomitant]
     Indication: CONJUNCTIVITIS
     Dosage: UNK
     Route: 047

REACTIONS (2)
  - Cataract [Recovered/Resolved]
  - Blindness [Recovered/Resolved]
